FAERS Safety Report 25340148 (Version 1)
Quarter: 2025Q2

REPORT INFORMATION
  Report Type: Spontaneous
  Country: RO (occurrence: RO)
  Receive Date: 20250521
  Receipt Date: 20250521
  Transmission Date: 20250717
  Serious: Yes (Other)
  Sender: NOVO NORDISK
  Company Number: RO-NOVOPROD-1397855

PATIENT
  Age: 55 Year
  Sex: Male
  Weight: 124 kg

DRUGS (3)
  1. RYBELSUS [Suspect]
     Active Substance: SEMAGLUTIDE
     Indication: Product used for unknown indication
     Dates: end: 202502
  2. XIGDUO XR [Concomitant]
     Active Substance: DAPAGLIFLOZIN PROPANEDIOL\METFORMIN HYDROCHLORIDE
     Dates: start: 20230616
  3. RYBELSUS [Suspect]
     Active Substance: SEMAGLUTIDE
     Indication: Product used for unknown indication
     Dates: start: 202410

REACTIONS (3)
  - Pancreatitis chronic [Unknown]
  - Pancreatic cyst [Unknown]
  - Product use issue [Unknown]

NARRATIVE: CASE EVENT DATE: 20241001
